FAERS Safety Report 5133725-3 (Version None)
Quarter: 2006Q4

REPORT INFORMATION
  Report Type: 
  Country: None (occurrence: None)
  Receive Date: 20061024
  Receipt Date: 20061018
  Transmission Date: 20070319
  Serious: Yes (Hospitalization)
  Sender: FDA-Public Use
  Company Number: IT-ROCHE-467672

PATIENT
  Age: 66 Year
  Sex: Male

DRUGS (6)
  1. TICLID [Suspect]
     Indication: DRUG USE FOR UNKNOWN INDICATION
     Route: 048
     Dates: start: 20041010, end: 20061010
  2. FELDENE [Suspect]
     Route: 048
     Dates: start: 20061009, end: 20061009
  3. CRESTOR [Concomitant]
     Route: 048
  4. COMBISARTAN [Concomitant]
     Route: 048
  5. GLIBOMET [Concomitant]
     Route: 048
  6. HUMULIN R [Concomitant]
     Route: 058

REACTIONS (2)
  - GASTROINTESTINAL ULCER HAEMORRHAGE [None]
  - HAEMOGLOBIN DECREASED [None]
